FAERS Safety Report 20608921 (Version 2)
Quarter: 2022Q1

REPORT INFORMATION
  Report Type: Report from Study
  Country: JP (occurrence: JP)
  Receive Date: 20220317
  Receipt Date: 20220322
  Transmission Date: 20220423
  Serious: Yes (Other)
  Sender: FDA-Public Use
  Company Number: JP-JNJFOC-20220315703

PATIENT
  Age: 83 Year
  Sex: Male

DRUGS (2)
  1. ERLEADA [Suspect]
     Active Substance: APALUTAMIDE
     Indication: Prostate cancer
     Route: 048
     Dates: start: 20220217
  2. RIVOTRIL [Concomitant]
     Active Substance: CLONAZEPAM
     Indication: Eyelid ptosis
     Dosage: DOSE UNKNOWN
     Route: 048

REACTIONS (4)
  - Blood pressure increased [Unknown]
  - Night sweats [Unknown]
  - Pruritus [Recovered/Resolved]
  - Blepharospasm [Recovering/Resolving]

NARRATIVE: CASE EVENT DATE: 20220101
